FAERS Safety Report 4698123-5 (Version None)
Quarter: 2005Q2

REPORT INFORMATION
  Report Type: 
  Country: None (occurrence: None)
  Receive Date: 20050623
  Receipt Date: 20050620
  Transmission Date: 20051028
  Serious: Yes (Other)
  Sender: FDA-Public Use
  Company Number: PHRM2005FR01910

PATIENT
  Age: 79 Year
  Sex: Male

DRUGS (2)
  1. EXELON [Suspect]
     Indication: DEMENTIA ALZHEIMER'S TYPE
     Dosage: 3 MG/DAY
     Route: 048
     Dates: start: 20041123, end: 20041130
  2. EXELON [Suspect]
     Dosage: 6 MG/DAY
     Route: 048
     Dates: start: 20041201, end: 20050115

REACTIONS (2)
  - LOSS OF CONSCIOUSNESS [None]
  - VOMITING [None]
